FAERS Safety Report 15007720 (Version 2)
Quarter: 2018Q3

REPORT INFORMATION
  Report Type: Spontaneous
  Country: PL (occurrence: PL)
  Receive Date: 20180613
  Receipt Date: 20180702
  Transmission Date: 20181010
  Serious: Yes (Other)
  Sender: FDA-Public Use
  Company Number: PL-PFIZER INC-2018123371

PATIENT
  Age: 65 Year
  Sex: Female

DRUGS (2)
  1. PROVERA [Suspect]
     Active Substance: MEDROXYPROGESTERONE ACETATE
     Dosage: 1 TABLET, DAILY
     Dates: end: 20180513
  2. MONKASTA [Concomitant]
     Indication: HYPERSENSITIVITY
     Dosage: UNK

REACTIONS (7)
  - Endometrial hyperplasia [Unknown]
  - Gastrooesophageal reflux disease [Unknown]
  - Influenza [Unknown]
  - Blood cholesterol decreased [Unknown]
  - Asthma [Unknown]
  - Sleep disorder [Unknown]
  - Therapeutic response unexpected [Unknown]
